FAERS Safety Report 4356918-1 (Version None)
Quarter: 2004Q2

REPORT INFORMATION
  Report Type: 
  Country: None (occurrence: None)
  Receive Date: 20040507
  Receipt Date: 20040429
  Transmission Date: 20050107
  Serious: Yes (Hospitalization)
  Sender: FDA-Public Use
  Company Number: TPA2004A00032

PATIENT
  Age: 45 Year
  Sex: Female
  Weight: 96.1626 kg

DRUGS (5)
  1. ACTOS [Suspect]
     Indication: DIABETES MELLITUS NON-INSULIN-DEPENDENT
     Dosage: 30 MG, 1 IN 1 D, PER ORAL
     Route: 048
     Dates: start: 20010425, end: 20010429
  2. LANTUS (INSULIN GLARGINE) (40 IU (INTERNATIONAL UNIT)) [Concomitant]
  3. PLAVIX (CLOPIDOGREL SULFATE ) (75 MILLIGRAM) [Concomitant]
  4. TOPROL XL (METOPROLOL SUCCINATE) (200 MILLIGRAM) [Concomitant]
  5. ASPIRIN (ACETYLSALICYLIC ACID) (325 MILLIGRAM) [Concomitant]

REACTIONS (2)
  - CORONARY ARTERY OCCLUSION [None]
  - DYSPNOEA [None]
